FAERS Safety Report 9255631 (Version 2)
Quarter: 2013Q2

REPORT INFORMATION
  Report Type: Spontaneous
  Country: JP (occurrence: JP)
  Receive Date: 20130425
  Receipt Date: 20130531
  Transmission Date: 20140414
  Serious: No
  Sender: FDA-Public Use
  Company Number: JP-GLAXOSMITHKLINE-B0886015A

PATIENT
  Age: 36 Year
  Sex: Female

DRUGS (8)
  1. PAXIL [Suspect]
     Indication: SOCIAL PHOBIA
     Dosage: 12.5MG PER DAY
     Route: 048
     Dates: start: 20130118, end: 20130131
  2. PAXIL [Suspect]
     Indication: SOCIAL PHOBIA
     Dosage: 25MG PER DAY
     Route: 048
     Dates: start: 20130201, end: 20130307
  3. PAXIL [Suspect]
     Indication: SOCIAL PHOBIA
     Dosage: 37.5MG PER DAY
     Route: 048
     Dates: start: 20130308, end: 20130404
  4. MYSLEE [Concomitant]
     Route: 048
  5. MYSTAN [Concomitant]
     Route: 048
  6. FAMOTIDINE [Concomitant]
     Indication: GASTROOESOPHAGEAL REFLUX DISEASE
     Dosage: 20MG TWICE PER DAY
     Route: 048
  7. CHINESE MEDICINE [Concomitant]
     Indication: HYPERHIDROSIS
     Dosage: 2.5G THREE TIMES PER DAY
     Route: 048
  8. CONSTAN [Concomitant]
     Route: 048

REACTIONS (4)
  - Rapid eye movements sleep abnormal [Recovered/Resolved]
  - Nightmare [Recovered/Resolved]
  - Sleep talking [Recovered/Resolved]
  - Abnormal behaviour [Recovered/Resolved]
